FAERS Safety Report 9265994 (Version 3)
Quarter: 2013Q3

REPORT INFORMATION
  Report Type: Report from Study
  Country: FR (occurrence: FR)
  Receive Date: 20130501
  Receipt Date: 20130702
  Transmission Date: 20140515
  Serious: Yes (Hospitalization)
  Sender: FDA-Public Use
  Company Number: FR-PFIZER INC-2013129243

PATIENT
  Age: 65 Year
  Sex: Male
  Weight: 67 kg

DRUGS (8)
  1. TEMSIROLIMUS [Suspect]
     Dosage: 15MG, UNK (CYCLE 1 DAY 2)
     Dates: start: 20130328, end: 20130328
  2. TEMSIROLIMUS [Suspect]
     Dosage: 15 MG,  (DAY 8)
     Dates: start: 20130404, end: 20130404
  3. TEMSIROLIMUS [Suspect]
     Dosage: 15 MG, UNK (DAY 2)
     Dates: start: 20130418, end: 20130418
  4. DOXORUBICIN HCL [Suspect]
     Indication: NON-HODGKIN^S LYMPHOMA
     Dosage: UNK
     Dates: start: 20130327, end: 20130417
  5. SOLU-MEDROL [Suspect]
     Indication: NON-HODGKIN^S LYMPHOMA
     Dosage: UNK
     Dates: start: 20130327, end: 20130417
  6. CYCLOPHOSPHAMIDE [Suspect]
     Indication: NON-HODGKIN^S LYMPHOMA
     Dosage: UNK
     Dates: start: 20130327, end: 20130417
  7. VINCRISTINE [Suspect]
     Indication: NON-HODGKIN^S LYMPHOMA
     Dosage: UNK
     Dates: start: 20130327, end: 20130417
  8. RITUXIMAB [Suspect]
     Indication: NON-HODGKIN^S LYMPHOMA
     Dosage: UNK
     Dates: start: 20130327, end: 20130417

REACTIONS (1)
  - Bronchopneumopathy [Recovered/Resolved]
